FAERS Safety Report 7215874-9 (Version None)
Quarter: 2011Q1

REPORT INFORMATION
  Report Type: 
  Country: None (occurrence: None)
  Receive Date: 20110107
  Receipt Date: 20110104
  Transmission Date: 20110831
  Serious: Yes (Other)
  Sender: FDA-Public Use
  Company Number: CA-PFIZER INC-2010157790

PATIENT
  Age: 28 Year
  Sex: Male

DRUGS (7)
  1. ZELDOX [Suspect]
     Indication: SCHIZOPHRENIA
     Dosage: 40 MG DAILY
     Dates: start: 20100729, end: 20100817
  2. IMOVANE [Concomitant]
     Dosage: 5 MG, UNK
     Dates: end: 20100701
  3. ZELDOX [Suspect]
     Dosage: 60 MG, 2X/DAY
     Dates: start: 20100930, end: 20101203
  4. ZELDOX [Suspect]
     Dosage: 40 MG, 2X/DAY
     Dates: start: 20100818, end: 20100929
  5. ZYPREXA [Concomitant]
     Dosage: 5 MG, UNK
  6. TOPAMAX [Concomitant]
     Dosage: 100 MG, 1X/DAY AT BEDTIME
     Dates: end: 20101101
  7. CLONAZEPAM [Concomitant]
     Dosage: 0.25 MG, 1X/DAY AT BEDTIME AS NEEDED

REACTIONS (5)
  - FATIGUE [None]
  - WEIGHT DECREASED [None]
  - ELECTROCARDIOGRAM PR PROLONGATION [None]
  - SINUS BRADYCARDIA [None]
  - ARRHYTHMIA [None]
